FAERS Safety Report 7722426-0 (Version None)
Quarter: 2011Q3

REPORT INFORMATION
  Report Type: 
  Country: None (occurrence: None)
  Receive Date: 20110825
  Receipt Date: 20110818
  Transmission Date: 20111222
  Serious: Yes (Hospitalization)
  Sender: FDA-Public Use
  Company Number: 15797459

PATIENT
  Age: 72 Year
  Sex: Male

DRUGS (4)
  1. PLACEBO [Suspect]
     Dates: start: 20110511, end: 20110501
  2. WARFARIN SODIUM [Suspect]
     Indication: EMBOLISM
     Dosage: 8 MILLIGRAM 1 DAY, ORAL
     Route: 048
     Dates: start: 20110511, end: 20110529
  3. APIXABAN [Suspect]
     Indication: EMBOLISM
     Dosage: 10 MILLIGRAM 1 DAY, ORAL
     Route: 048
     Dates: start: 20110511, end: 20110529
  4. ENOXAPARIN SODIUM [Suspect]
     Indication: EMBOLISM
     Dosage: 1.64 MILLILITER 1 DAY, SC
     Route: 058
     Dates: start: 20110511, end: 20110517

REACTIONS (2)
  - LIVER ABSCESS [None]
  - STAPHYLOCOCCAL SEPSIS [None]
